FAERS Safety Report 24466655 (Version 1)
Quarter: 2024Q4

REPORT INFORMATION
  Report Type: Spontaneous
  Country: US (occurrence: US)
  Receive Date: 20241018
  Receipt Date: 20241018
  Transmission Date: 20250114
  Serious: No
  Sender: ROCHE
  Company Number: US-ROCHE-3549819

PATIENT
  Sex: Female

DRUGS (35)
  1. XOLAIR [Suspect]
     Active Substance: OMALIZUMAB
     Indication: Asthma
     Route: 058
  2. XOLAIR [Suspect]
     Active Substance: OMALIZUMAB
  3. ALBUTEROL [Concomitant]
     Active Substance: ALBUTEROL
     Dosage: 108/90?1.25 MG/3
  4. ALLEGRA [Concomitant]
     Active Substance: FEXOFENADINE HYDROCHLORIDE
     Dosage: 180 MG
  5. AMITRIPTYLINE [Concomitant]
     Active Substance: AMITRIPTYLINE
  6. ATORVASTATIN [Concomitant]
     Active Substance: ATORVASTATIN
  7. AZELASTINE [Concomitant]
     Active Substance: AZELASTINE
  8. VITAMIN B COMPLEX [Concomitant]
     Active Substance: CYANOCOBALAMIN\DEXPANTHENOL\NIACINAMIDE\PYRIDOXINE HYDROCHLORIDE\RIBOFLAVIN 5^-PHOSPHATE SODIUM\THIA
  9. BACLOFEN [Concomitant]
     Active Substance: BACLOFEN
  10. CORLANOR [Concomitant]
     Active Substance: IVABRADINE HYDROCHLORIDE
  11. DOXYCYCLINE [Concomitant]
     Active Substance: DOXYCYCLINE
  12. EMGALITY [Concomitant]
     Active Substance: GALCANEZUMAB-GNLM
     Dosage: 120 MG/ML
  13. EPIPEN [Concomitant]
     Active Substance: EPINEPHRINE
  14. FAMOTIDINE [Concomitant]
     Active Substance: FAMOTIDINE
  15. FLUCONAZOLE [Concomitant]
     Active Substance: FLUCONAZOLE
  16. FOLIC ACID [Concomitant]
     Active Substance: FOLIC ACID
  17. IPRATROPIUM [Concomitant]
     Active Substance: IPRATROPIUM
  18. LEVOTHYROXINE [Concomitant]
     Active Substance: LEVOTHYROXINE
  19. MICONAZOLE [Concomitant]
     Active Substance: MICONAZOLE
  20. MONTELUKAST [Concomitant]
     Active Substance: MONTELUKAST
  21. MOUNJARO [Concomitant]
     Active Substance: TIRZEPATIDE
  22. MUPIROCIN [Concomitant]
     Active Substance: MUPIROCIN
  23. SODIUM SULFATE [Concomitant]
     Active Substance: SODIUM SULFATE
  24. NYSTOP [Concomitant]
     Active Substance: NYSTATIN
  25. OMEPRAZOLE [Concomitant]
     Active Substance: OMEPRAZOLE
  26. ONDANSETRON [Concomitant]
     Active Substance: ONDANSETRON
  27. OXYCODONE [Concomitant]
     Active Substance: OXYCODONE
  28. PREGABALIN [Concomitant]
     Active Substance: PREGABALIN
  29. QVAR REDIHALER [Concomitant]
     Active Substance: BECLOMETHASONE DIPROPIONATE
  30. RIZATRIPTAN [Concomitant]
     Active Substance: RIZATRIPTAN
  31. THEOPHYLLINE [Concomitant]
     Active Substance: THEOPHYLLINE
  32. TRELEGY ELLIPTA [Concomitant]
     Active Substance: FLUTICASONE FUROATE\UMECLIDINIUM BROMIDE\VILANTEROL TRIFENATATE
  33. TRIAMCINOLONE [Concomitant]
     Active Substance: TRIAMCINOLONE
  34. UBRELVY [Concomitant]
     Active Substance: UBROGEPANT
  35. VERAPAMIL [Concomitant]
     Active Substance: VERAPAMIL HYDROCHLORIDE

REACTIONS (6)
  - Rhinorrhoea [Not Recovered/Not Resolved]
  - Choking [Not Recovered/Not Resolved]
  - Hypersensitivity [Not Recovered/Not Resolved]
  - Depression [Not Recovered/Not Resolved]
  - Insomnia [Not Recovered/Not Resolved]
  - Off label use [Unknown]
